FAERS Safety Report 8388207-2 (Version None)
Quarter: 2012Q2

REPORT INFORMATION
  Report Type: 
  Country: None (occurrence: None)
  Receive Date: 20120525
  Receipt Date: 20120523
  Transmission Date: 20120825
  Serious: Yes (Death, Other)
  Sender: FDA-Public Use
  Company Number: PHHY2012US044477

PATIENT
  Sex: Male

DRUGS (4)
  1. AMLODIPINE BESYLATE [Concomitant]
  2. HYDROCHLOROTHIAZIDE [Suspect]
  3. CLONIDINE [Concomitant]
  4. PROPRANOLOL [Concomitant]

REACTIONS (5)
  - HYPERTENSION [None]
  - CARDIAC ARREST [None]
  - PYREXIA [None]
  - CARDIO-RESPIRATORY ARREST [None]
  - HYPOXIC-ISCHAEMIC ENCEPHALOPATHY [None]
